FAERS Safety Report 4965430-8 (Version None)
Quarter: 2006Q2

REPORT INFORMATION
  Report Type: 
  Country: None (occurrence: None)
  Receive Date: 20060406
  Receipt Date: 20060314
  Transmission Date: 20061013
  Serious: Yes (Other)
  Sender: FDA-Public Use
  Company Number: JP-MERCK-0603USA04694

PATIENT
  Age: 61 Year
  Sex: Male

DRUGS (3)
  1. ZOCOR [Suspect]
     Indication: HYPERLIPIDAEMIA
     Route: 048
     Dates: start: 20060214, end: 20060223
  2. YAKUBAN [Concomitant]
     Indication: SHOULDER PAIN
     Route: 065
     Dates: start: 20050623
  3. ADALAT [Concomitant]
     Indication: HYPERTENSION
     Route: 048

REACTIONS (2)
  - NAUSEA [None]
  - OEDEMA [None]
